FAERS Safety Report 11633626 (Version 1)
Quarter: 2015Q4

REPORT INFORMATION
  Report Type: Report from Study
  Country: BG (occurrence: BG)
  Receive Date: 20151015
  Receipt Date: 20151015
  Transmission Date: 20160304
  Serious: Yes (Hospitalization)
  Sender: FDA-Public Use
  Company Number: BG-ASTRAZENECA-2015SE97552

PATIENT
  Age: 75 Year
  Sex: Female

DRUGS (14)
  1. TELMISARTAN. [Suspect]
     Active Substance: TELMISARTAN
     Route: 065
  2. IVABRADINE [Concomitant]
     Active Substance: IVABRADINE
  3. TICAGRELOR [Suspect]
     Active Substance: TICAGRELOR
     Indication: ACUTE CORONARY SYNDROME
     Route: 048
     Dates: start: 20150517, end: 20150728
  4. METFORMIN [Concomitant]
     Active Substance: METFORMIN HYDROCHLORIDE
  5. REPAGLINIDE. [Concomitant]
     Active Substance: REPAGLINIDE
  6. ATORVASTATIN [Concomitant]
     Active Substance: ATORVASTATIN
  7. CLOPIDOGREL [Suspect]
     Active Substance: CLOPIDOGREL BISULFATE
     Indication: ACUTE CORONARY SYNDROME
     Route: 048
     Dates: start: 20150728
  8. ASPIRIN. [Suspect]
     Active Substance: ASPIRIN
     Indication: ACUTE CORONARY SYNDROME
     Dosage: NON AZ PRODUCT
     Route: 048
  9. ESOMEPRAZOLE [Concomitant]
     Active Substance: ESOMEPRAZOLE
  10. BISOPROLOL [Concomitant]
     Active Substance: BISOPROLOL
  11. TRIMETAZIDINE [Concomitant]
     Active Substance: TRIMETAZIDINE
  12. ACCETYSAL [Concomitant]
  13. TORASEMIDE [Concomitant]
     Active Substance: TORSEMIDE
  14. LEVOCETIRIZINE [Concomitant]
     Active Substance: LEVOCETIRIZINE

REACTIONS (2)
  - Gastrooesophageal reflux disease [Recovered/Resolved]
  - Dyspnoea [Recovered/Resolved]

NARRATIVE: CASE EVENT DATE: 20150728
